FAERS Safety Report 8141597-8 (Version None)
Quarter: 2012Q1

REPORT INFORMATION
  Report Type: 
  Country: None (occurrence: None)
  Receive Date: 20120103
  Receipt Date: 20110909
  Transmission Date: 20120608
  Serious: No
  Sender: FDA-Public Use
  Company Number: AE-2011-001459

PATIENT
  Age: 50 Year
  Sex: Male
  Weight: 65.7716 kg

DRUGS (6)
  1. RIBAVIRIN [Concomitant]
  2. INCIVEK [Suspect]
     Dosage: 2250 MG (750 MG,1 IN 8 HR), ORAL
     Route: 048
     Dates: start: 20110831
  3. METHADONE HCL [Concomitant]
  4. LIBRIUM [Concomitant]
  5. PEGASYS [Concomitant]
  6. ALPRAZOLAM [Concomitant]

REACTIONS (2)
  - NAUSEA [None]
  - RASH [None]
